FAERS Safety Report 8919512 (Version 2)
Quarter: 2013Q2

REPORT INFORMATION
  Report Type: Spontaneous
  Country: US (occurrence: US)
  Receive Date: 20121121
  Receipt Date: 20130405
  Transmission Date: 20140414
  Serious: Yes (Death, Hospitalization)
  Sender: FDA-Public Use
  Company Number: US-BAYER-2012-120777

PATIENT
  Age: 18 Year
  Sex: Female
  Weight: 99.77 kg

DRUGS (9)
  1. YAZ [Suspect]
     Indication: POLYCYSTIC OVARIES
     Dosage: UNK
     Dates: start: 20080630, end: 20111027
  2. GIANVI [Suspect]
     Indication: POLYCYSTIC OVARIES
     Dosage: UNK
     Dates: start: 2008, end: 2011
  3. AZITHROMYCIN [Concomitant]
     Indication: BRONCHITIS
     Dosage: UNK
     Dates: start: 20111024
  4. METFORMIN [Concomitant]
     Indication: INSULIN RESISTANCE
     Dosage: UNK
     Dates: start: 2008, end: 2011
  5. HYDROMET SYRUP [Concomitant]
     Indication: COUGH
     Dosage: UNK
     Dates: start: 20110924
  6. ZITHROMAX [Concomitant]
  7. HYCODAN [HYDROCODONE BITARTRATE] [Concomitant]
  8. GLUCOPHAGE [Concomitant]
  9. ANTIBIOTICS [Concomitant]

REACTIONS (7)
  - Pulmonary embolism [Fatal]
  - Injury [Fatal]
  - Pain [Fatal]
  - Anhedonia [None]
  - Pain [None]
  - Anxiety [None]
  - Off label use [None]
